FAERS Safety Report 7902093-3 (Version None)
Quarter: 2011Q4

REPORT INFORMATION
  Report Type: 
  Country: None (occurrence: None)
  Receive Date: 20111108
  Receipt Date: 20111028
  Transmission Date: 20120403
  Serious: Yes (Hospitalization, Other)
  Sender: FDA-Public Use
  Company Number: US-BAYER-201035908NA

PATIENT
  Sex: Female
  Weight: 63.492 kg

DRUGS (8)
  1. BENADRYL [Concomitant]
  2. ANTIEMETICS AND ANTINAUSEANTS [Concomitant]
  3. YAZ [Suspect]
     Indication: PRODUCT USED FOR UNKNOWN INDICATION
     Dosage: UNK UNK, UNK
     Route: 048
     Dates: start: 20050101, end: 20070101
  4. DROSPIRENONE AND ETHINYL ESTRADIOL [Suspect]
     Indication: PRODUCT USED FOR UNKNOWN INDICATION
     Route: 048
     Dates: start: 20050101, end: 20071001
  5. YASMIN [Suspect]
     Indication: PRODUCT USED FOR UNKNOWN INDICATION
     Route: 048
     Dates: start: 20050101, end: 20071001
  6. DILAUDID [Concomitant]
  7. DRUGS FOR FUNCTIONAL GASTROINTEST. DISORDERS [Concomitant]
  8. I.V. SOLUTIONS [Concomitant]

REACTIONS (2)
  - CHOLECYSTITIS CHRONIC [None]
  - GALLBLADDER DISORDER [None]
